FAERS Safety Report 24933517 (Version 3)
Quarter: 2025Q1

REPORT INFORMATION
  Report Type: Spontaneous
  Country: US (occurrence: US)
  Receive Date: 20250206
  Receipt Date: 20250227
  Transmission Date: 20250408
  Serious: Yes (Other)
  Sender: AUROBINDO
  Company Number: US-MLMSERVICE-20250116-PI361488-00111-1

PATIENT
  Age: 8 Decade
  Sex: Male

DRUGS (2)
  1. AMOXICILLIN\CLAVULANIC ACID [Suspect]
     Active Substance: AMOXICILLIN\CLAVULANIC ACID
     Indication: Citrobacter infection
     Dosage: UNK, ONE DOUBLE-STRENGTH TABLET ORALLY TWO TIMES PER DAY
     Route: 048
  2. SULFAMETHOXAZOLE\TRIMETHOPRIM [Suspect]
     Active Substance: SULFAMETHOXAZOLE\TRIMETHOPRIM
     Indication: Citrobacter infection
     Dosage: UNK UNK, TWO TIMES A DAY
     Route: 048

REACTIONS (1)
  - Acute kidney injury [Unknown]
